FAERS Safety Report 6718559-8 (Version None)
Quarter: 2010Q2

REPORT INFORMATION
  Report Type: 
  Country: None (occurrence: None)
  Receive Date: 20100503
  Receipt Date: 20100417
  Transmission Date: 20101027
  Serious: Yes (Hospitalization)
  Sender: FDA-Public Use
  Company Number: AUR-APL-2010-01122

PATIENT
  Age: 37 Year
  Sex: Female

DRUGS (3)
  1. TOPIRAMATE [Suspect]
     Indication: SUICIDE ATTEMPT
     Dosage: ORAL
     Route: 048
  2. IBUPROFEN [Concomitant]
  3. DIAZEPAM [Concomitant]

REACTIONS (10)
  - ATAXIA [None]
  - BLOOD POTASSIUM DECREASED [None]
  - CLONIC CONVULSION [None]
  - DYSARTHRIA [None]
  - EXCORIATION [None]
  - METABOLIC ACIDOSIS [None]
  - MUSCLE TWITCHING [None]
  - NYSTAGMUS [None]
  - SOMNOLENCE [None]
  - UNRESPONSIVE TO STIMULI [None]
